FAERS Safety Report 9184629 (Version 1)
Quarter: 2013Q1

REPORT INFORMATION
  Report Type: Spontaneous
  Country: US (occurrence: US)
  Receive Date: 20130324
  Receipt Date: 20130324
  Transmission Date: 20140127
  Serious: Yes (Other)
  Sender: FDA-Public Use
  Company Number: US-PFIZER INC-2013091731

PATIENT
  Age: 84 Year
  Sex: Female
  Weight: 77.1 kg

DRUGS (15)
  1. LATANOPROST [Suspect]
     Indication: OCULAR HYPERTENSION
     Dosage: 1 GTT, 1X/DAY
     Route: 047
     Dates: start: 2012
  2. COZAAR [Concomitant]
     Indication: HYPERTENSION
     Dosage: 50 MG, 2X/DAY
  3. PROTONIX [Concomitant]
     Indication: GASTRIC DISORDER
     Dosage: 40 MG, 1X/DAY
  4. PROTONIX [Concomitant]
     Indication: DYSPEPSIA
  5. GLYCERIN [Concomitant]
     Indication: DRY MOUTH
     Dosage: UNK
  6. XANAX [Concomitant]
     Dosage: 0.5 MG, AS NEEDED
  7. LASIX [Concomitant]
     Dosage: 20 MG, 2X/DAY
  8. SYNTHROID [Concomitant]
     Dosage: 80 UG, 1X/DAY
  9. EMLA [Concomitant]
     Indication: PAIN
     Dosage: UNK
  10. ENULOSE [Concomitant]
     Indication: GASTRIC DISORDER
     Dosage: 10 G, 2X/DAY
  11. ENULOSE [Concomitant]
     Indication: DYSPEPSIA
  12. FLOVENT [Concomitant]
     Dosage: 220 MG, UNK
  13. SEREVENT [Concomitant]
     Dosage: 50 UG, UNK
  14. VERAMYST [Concomitant]
     Dosage: 27.5 UG, UNK
  15. TRAMADOL [Concomitant]
     Dosage: 50 MG, EVERY 4 HRS

REACTIONS (5)
  - Vision blurred [Unknown]
  - Eye irritation [Unknown]
  - Eye pruritus [Unknown]
  - Dry eye [Unknown]
  - Blood urea increased [Unknown]
